FAERS Safety Report 26192722 (Version 1)
Quarter: 2025Q4

REPORT INFORMATION
  Report Type: Spontaneous
  Country: EU (occurrence: EU)
  Receive Date: 20251223
  Receipt Date: 20251223
  Transmission Date: 20260119
  Serious: Yes (Life-Threatening, Hospitalization, Other)
  Sender: FRESENIUS KABI
  Company Number: None

PATIENT
  Age: 52 Year
  Sex: Male
  Weight: 88 kg

DRUGS (15)
  1. IRINOTECAN [Suspect]
     Active Substance: IRINOTECAN
     Indication: Adenocarcinoma of colon
     Dosage: 2 TIMES?FOA: CONCENTRATION FOR SOLUTION FOR INFUSION
     Route: 042
     Dates: start: 20251029, end: 20251111
  2. FLUOROURACIL [Suspect]
     Active Substance: FLUOROURACIL
     Indication: Adenocarcinoma of colon
     Dosage: PREVIOUSLY ADMINISTERED AS PART OF FOLFOX CHEMOTHERAPY, WITHOUT COMPLICATIONS.?FOA: SOLUTION FOR INJ
     Route: 042
     Dates: start: 20240806, end: 20251111
  3. ATROPINE [Suspect]
     Active Substance: ATROPINE
     Indication: Chemotherapy side effect prophylaxis
     Dosage: 2X AS PREMEDICATION?FOA: SOLUTION FOR INJECTION
     Route: 058
     Dates: start: 20251029, end: 20251111
  4. ZALTRAP [Suspect]
     Active Substance: ZIV-AFLIBERCEPT
     Indication: Adenocarcinoma of colon
     Dosage: FOA: CONCENTRATION FOR SOLUTION FOR INFUSION?ADMINISTERED 2X IN 14 DAYS?ONCOLOGICAL TREATMENT NOW IN
     Route: 042
     Dates: start: 20251029, end: 20251111
  5. TROMBEX 75MG [Concomitant]
     Indication: Product used for unknown indication
     Dosage: 0-1-0
  6. ANOPYRIN 100MG [Concomitant]
     Indication: Product used for unknown indication
     Dosage: 0-1-0
  7. FUROSEMIDE [Concomitant]
     Active Substance: FUROSEMIDE
     Indication: Product used for unknown indication
     Dosage: 1-0-0
  8. NOLPAZA 40MG [Concomitant]
     Indication: Product used for unknown indication
     Dosage: 1-0-0
  9. CONCOR 5MG [Concomitant]
     Indication: Product used for unknown indication
     Dosage: 1-0-0
  10. ENTRESTO [Concomitant]
     Active Substance: SACUBITRIL\VALSARTAN
     Indication: Product used for unknown indication
     Dosage: DOSAGE: 2-0-1, SACUBITRIL 24MG, VALSARTAN 26MG
     Dates: start: 20230420, end: 20230714
  11. ENTRESTO [Concomitant]
     Active Substance: SACUBITRIL\VALSARTAN
     Dosage: DOSAGE: 1/2-0-1/2 OR 1-0-0, SACUBITRIL 24MG, VALSARTAN 26MG
     Dates: start: 20230714
  12. ENTRESTO [Concomitant]
     Active Substance: SACUBITRIL\VALSARTAN
     Dosage: 1-0-1, TOTAL DOSE 50MG, SACUBITRIL 24MG, VALSARTAN 26MG
     Dates: end: 20230420
  13. VEROSPIRON 25MG [Concomitant]
     Indication: Product used for unknown indication
     Dosage: 0-1-0
  14. VOKANAMET 50MG/1000MG [Concomitant]
     Indication: Product used for unknown indication
     Dosage: 1-0-1, TOTAL DOSE 1050MG, KANAGLIFLOZIN 50MG, METFORMIN HYDROCHLORIDE 1000MG
  15. ZENON 40MG/10MG [Concomitant]
     Indication: Product used for unknown indication
     Dosage: 1-0-0; EZETIMIBE 10MG; ROSUSVASTATIN 40MG; TOTAL DOSE 50 MG
     Dates: start: 20230420

REACTIONS (2)
  - Pulmonary embolism [Recovering/Resolving]
  - Cardiac failure [Recovering/Resolving]

NARRATIVE: CASE EVENT DATE: 20251114
